FAERS Safety Report 25645454 (Version 1)
Quarter: 2025Q3

REPORT INFORMATION
  Report Type: Spontaneous
  Country: AU (occurrence: AU)
  Receive Date: 20250805
  Receipt Date: 20250805
  Transmission Date: 20251020
  Serious: Yes (Other)
  Sender: MYLAN
  Company Number: None

PATIENT
  Age: 29 Year
  Sex: Female

DRUGS (11)
  1. ARIPIPRAZOLE [Suspect]
     Active Substance: ARIPIPRAZOLE
     Indication: Product used for unknown indication
     Dosage: 10 MILLIGRAM, AM (IN MORNING)
  2. FLUVOXAMINE MALEATE [Suspect]
     Active Substance: FLUVOXAMINE MALEATE
     Indication: Product used for unknown indication
     Dosage: 50 MILLIGRAM, PM (AT NIGHT)
  3. CLOZAPINE [Suspect]
     Active Substance: CLOZAPINE
     Indication: Schizoaffective disorder
  4. CLOZAPINE [Suspect]
     Active Substance: CLOZAPINE
  5. CLOZAPINE [Suspect]
     Active Substance: CLOZAPINE
     Dosage: 125 MILLIGRAM, QD (DAILY)
     Dates: start: 202207
  6. CLOZAPINE [Suspect]
     Active Substance: CLOZAPINE
  7. CLOZAPINE [Suspect]
     Active Substance: CLOZAPINE
     Dosage: 150 MILLIGRAM, QD (DAILY)
  8. CLOZAPINE [Suspect]
     Active Substance: CLOZAPINE
  9. CLOZAPINE [Suspect]
     Active Substance: CLOZAPINE
  10. DOCUSATE SODIUM\SENNOSIDES A AND B [Suspect]
     Active Substance: DOCUSATE SODIUM\SENNOSIDES A AND B
     Indication: Product used for unknown indication
     Dosage: UNK, BID (50MG/8G, 2MANE, 1 NOCTE)
  11. LITHIUM [Suspect]
     Active Substance: LITHIUM
     Indication: Product used for unknown indication
     Dosage: 450 MILLIGRAM, PM (2 AT NIGHT)

REACTIONS (11)
  - Tricuspid valve incompetence [Unknown]
  - Cardiac disorder [Unknown]
  - Sinus tachycardia [Unknown]
  - Blood pressure fluctuation [Unknown]
  - Bundle branch block right [Unknown]
  - Gastrooesophageal reflux disease [Unknown]
  - Mean cell haemoglobin concentration decreased [Unknown]
  - Orthostatic hypotension [Unknown]
  - Constipation [Unknown]
  - Dizziness [Unknown]
  - Weight increased [Unknown]
